FAERS Safety Report 10037810 (Version 3)
Quarter: 2014Q2

REPORT INFORMATION
  Report Type: Report from Study
  Country: BR (occurrence: BR)
  Receive Date: 20140326
  Receipt Date: 20140528
  Transmission Date: 20141212
  Serious: Yes (Other)
  Sender: FDA-Public Use
  Company Number: PHHY2014BR031729

PATIENT
  Age: 63 Year
  Sex: Female
  Weight: 75 kg

DRUGS (8)
  1. SYNTHROID [Concomitant]
     Indication: THYROID DISORDER
     Dosage: 1 DF, DAILY
     Dates: start: 1997
  2. AP CALCIUM+VIT D [Concomitant]
     Indication: PROPHYLAXIS
     Dosage: UNK UKN, UNK
     Dates: start: 1997
  3. AP CALCIUM+VIT D [Concomitant]
     Dosage: UNK UKN, UNK
  4. DIOVAN HCT [Suspect]
     Indication: HYPERTENSION
     Dosage: 1 DF (VALS 160 MG, HCTZ 12.5 MG) DAILY
     Route: 048
  5. DIOVAN HCT [Suspect]
     Dosage: 1 DF, DAILY (VALS 80 MG, HYDR 12.5 MG)
     Route: 048
     Dates: start: 201405
  6. DIOVAN [Suspect]
     Indication: HYPERTENSION
     Dosage: 1 DF, QD
     Route: 048
  7. SELOZOK [Concomitant]
     Indication: BLOOD PRESSURE
     Dosage: UNK UKN, UNK (50 MG)
  8. SELOZOK [Concomitant]
     Indication: ARRHYTHMIA

REACTIONS (4)
  - Intestinal perforation [Recovered/Resolved]
  - Incisional hernia [Recovered/Resolved]
  - Muscle hernia [Not Recovered/Not Resolved]
  - Fall [Recovered/Resolved]
